FAERS Safety Report 5551536-1 (Version None)
Quarter: 2007Q4

REPORT INFORMATION
  Report Type: 
  Country: None (occurrence: None)
  Receive Date: 20071129
  Receipt Date: 20070613
  Transmission Date: 20080405
  Serious: Yes (Hospitalization)
  Sender: FDA-Public Use
  Company Number: US200703001964

PATIENT
  Age: 41 Year
  Sex: Female
  Weight: 69.8 kg

DRUGS (12)
  1. ZYPREXA [Suspect]
     Dosage: 20 MG, 5 MG, 10  MG
     Dates: start: 19940101, end: 19980101
  2. ZYPREXA [Suspect]
     Dosage: 20 MG, 5 MG, 10  MG
     Dates: start: 19980101, end: 20030101
  3. ZYPREXA [Suspect]
     Dosage: 20 MG, 5 MG, 10  MG
     Dates: start: 19980101, end: 20030101
  4. ZYPREXA [Suspect]
     Dosage: 20 MG, 5 MG, 10  MG
     Dates: start: 20030101, end: 20061101
  5. ABILIFY [Concomitant]
  6. QUETIAPINE FUMARATE [Concomitant]
  7. ZIPRASIDONE HCL [Concomitant]
  8. BUPROPION HCL [Concomitant]
  9. NEFAZODONE HCL [Concomitant]
  10. PAXIL [Concomitant]
  11. SERTRALINE [Concomitant]
  12. VENLAFAXINE HCL [Concomitant]

REACTIONS (8)
  - DIABETES MELLITUS [None]
  - DIABETIC KETOACIDOSIS [None]
  - GLYCOSURIA [None]
  - HYPERPHAGIA [None]
  - METABOLIC DISORDER [None]
  - POLYDIPSIA [None]
  - POLYURIA [None]
  - VISION BLURRED [None]
